FAERS Safety Report 13827762 (Version 1)
Quarter: 2017Q3

REPORT INFORMATION
  Report Type: Spontaneous
  Country: BR (occurrence: BR)
  Receive Date: 20170803
  Receipt Date: 20170803
  Transmission Date: 20171127
  Serious: Yes (Other)
  Sender: FDA-Public Use
  Company Number: BR-AMGEN-BRASP2012016822

PATIENT
  Age: 75 Year
  Sex: Female
  Weight: 45 kg

DRUGS (5)
  1. SIMVASTATIN. [Concomitant]
     Active Substance: SIMVASTATIN
     Dosage: UNK
     Dates: start: 201110
  2. HIXIZINE [Concomitant]
     Active Substance: HYDROXYZINE HYDROCHLORIDE
     Dosage: UNK
  3. ENBREL [Suspect]
     Active Substance: ETANERCEPT
     Indication: RHEUMATOID ARTHRITIS
     Dosage: 50 MG, 1X/WEEK
     Route: 058
     Dates: start: 20110303, end: 201112
  4. ENBREL [Suspect]
     Active Substance: ETANERCEPT
     Dosage: 50 MG, 1X/WEEK
     Route: 058
     Dates: start: 201201
  5. ALENDRONATE SODIUM. [Concomitant]
     Active Substance: ALENDRONATE SODIUM
     Dosage: UNK

REACTIONS (14)
  - Hypersensitivity [Unknown]
  - Generalised erythema [Recovering/Resolving]
  - Hypersensitivity [Recovered/Resolved]
  - Foot deformity [Not Recovered/Not Resolved]
  - Gait disturbance [Not Recovered/Not Resolved]
  - Ear disorder [Unknown]
  - Nervousness [Unknown]
  - Finger deformity [Not Recovered/Not Resolved]
  - Skin sensitisation [Unknown]
  - Lumbar vertebral fracture [Recovered/Resolved]
  - Tendon rupture [Unknown]
  - Skin haemorrhage [Recovered/Resolved]
  - Pruritus [Not Recovered/Not Resolved]
  - Skin depigmentation [Unknown]

NARRATIVE: CASE EVENT DATE: 201108
